FAERS Safety Report 6060678-6 (Version None)
Quarter: 2009Q1

REPORT INFORMATION
  Report Type: 
  Country: None (occurrence: None)
  Receive Date: 20090202
  Receipt Date: 20090121
  Transmission Date: 20090719
  Serious: Yes (Other)
  Sender: FDA-Public Use
  Company Number: US-PFIZER INC-2009158840

PATIENT
  Sex: Female
  Weight: 65.317 kg

DRUGS (1)
  1. XALATAN [Suspect]
     Dates: end: 20090101

REACTIONS (1)
  - INTRAOCULAR PRESSURE INCREASED [None]
